FAERS Safety Report 13811656 (Version 1)
Quarter: 2017Q3

REPORT INFORMATION
  Report Type: Spontaneous
  Country: US (occurrence: US)
  Receive Date: 20170728
  Receipt Date: 20170728
  Transmission Date: 20171127
  Serious: No
  Sender: FDA-Public Use
  Company Number: US-ROCHE-786787

PATIENT
  Age: 60 Year
  Sex: Female
  Weight: 55.3 kg

DRUGS (5)
  1. ZANTAC [Concomitant]
     Active Substance: RANITIDINE HYDROCHLORIDE
     Route: 065
  2. XANAX [Suspect]
     Active Substance: ALPRAZOLAM
     Indication: ANXIETY
     Route: 065
  3. BONIVA [Suspect]
     Active Substance: IBANDRONATE SODIUM
     Indication: OSTEOPENIA
     Route: 042
  4. BONIVA [Suspect]
     Active Substance: IBANDRONATE SODIUM
     Dosage: REPORTED AS 1MG/ML
     Route: 042
  5. SIMVASTATIN. [Suspect]
     Active Substance: SIMVASTATIN
     Indication: PRODUCT USED FOR UNKNOWN INDICATION
     Route: 065

REACTIONS (1)
  - Blood parathyroid hormone increased [Unknown]

NARRATIVE: CASE EVENT DATE: 20110613
